FAERS Safety Report 22319100 (Version 2)
Quarter: 2023Q2

REPORT INFORMATION
  Report Type: Spontaneous
  Country: FR (occurrence: FR)
  Receive Date: 20230515
  Receipt Date: 20230619
  Transmission Date: 20230722
  Serious: Yes (Life-Threatening, Hospitalization)
  Sender: FDA-Public Use
  Company Number: FR-BAYER-2023A065945

PATIENT
  Age: 61 Year
  Sex: Male
  Weight: 82 kg

DRUGS (1)
  1. APROTININ [Suspect]
     Active Substance: APROTININ
     Indication: Coronary artery bypass
     Dosage: HALF DOSE TEST DOSE + BOLUS + CONTINUOUS INFUSION
     Route: 042
     Dates: start: 20230428, end: 20230428

REACTIONS (2)
  - Peripheral artery thrombosis [Recovering/Resolving]
  - Atrial thrombosis [Recovering/Resolving]

NARRATIVE: CASE EVENT DATE: 20230428
